FAERS Safety Report 22317050 (Version 1)
Quarter: 2023Q2

REPORT INFORMATION
  Report Type: Spontaneous
  Country: US (occurrence: None)
  Receive Date: 20230514
  Receipt Date: 20230514
  Transmission Date: 20230722
  Serious: Yes (Other)
  Sender: FDA-Public Use
  Company Number: 2023A109818

PATIENT
  Sex: Male

DRUGS (1)
  1. CRESTOR [Suspect]
     Active Substance: ROSUVASTATIN CALCIUM
     Dosage: 20.0MG UNKNOWN
     Route: 048
     Dates: start: 2013

REACTIONS (5)
  - Hand fracture [Unknown]
  - Foot fracture [Unknown]
  - Pain in extremity [Unknown]
  - Rash [Unknown]
  - Hypersensitivity [Unknown]
